FAERS Safety Report 8622044-6 (Version None)
Quarter: 2012Q3

REPORT INFORMATION
  Report Type: 
  Country: None (occurrence: None)
  Receive Date: 20120823
  Receipt Date: 20120823
  Transmission Date: 20120928
  Serious: Yes (Hospitalization)
  Sender: FDA-Public Use
  Company Number: None

PATIENT
  Age: 39 Year
  Sex: Female
  Weight: 82.5547 kg

DRUGS (15)
  1. PREDNISONE [Concomitant]
  2. PYROXIDINE [Concomitant]
  3. CALCIUM [Concomitant]
  4. FOLIC ACID [Concomitant]
  5. LEUCOVORIN CALCIUM [Concomitant]
  6. METHOTREXATE [Concomitant]
  7. RITUXAN [Suspect]
     Indication: RHEUMATOID ARTHRITIS
     Dosage: 1000 MG IVPB AT 100MG/HR
     Dates: start: 20120521, end: 20120630
  8. IBUPROFEN [Concomitant]
  9. LISINOPRIL [Concomitant]
  10. DIAZEPAM [Concomitant]
  11. FEXOFENADINE [Concomitant]
  12. PANTOPRAZOLE [Concomitant]
  13. ACETAMINOPHEN [Concomitant]
  14. DIPHENHYDRAMINE HYDROCHLORIDE [Concomitant]
  15. MULTI-VITAMIN [Concomitant]

REACTIONS (7)
  - VOMITING [None]
  - CHEST DISCOMFORT [None]
  - RASH [None]
  - INFUSION RELATED REACTION [None]
  - NAUSEA [None]
  - PRURITUS [None]
  - DYSPNOEA [None]
